FAERS Safety Report 9785744 (Version 1)
Quarter: 2013Q4

REPORT INFORMATION
  Report Type: Spontaneous
  Country: DE (occurrence: None)
  Receive Date: 20131223
  Receipt Date: 20131223
  Transmission Date: 20140711
  Serious: Yes (Other)
  Sender: FDA-Public Use
  Company Number: 1312-1606

PATIENT
  Age: 70 Year
  Sex: Female

DRUGS (3)
  1. EYLEA [Suspect]
     Indication: RECTOSIGMOID CANCER
     Dates: start: 20130715, end: 20131111
  2. FLUOROURACIL [Suspect]
     Indication: RECTOSIGMOID CANCER
     Route: 042
     Dates: start: 20130715, end: 20131111
  3. IRINOTECAN [Suspect]
     Indication: RECTOSIGMOID CANCER
     Route: 042
     Dates: start: 20130715, end: 20131111

REACTIONS (5)
  - Stomatitis [None]
  - Mucosal inflammation [None]
  - Asthenia [None]
  - Weight decreased [None]
  - Off label use [None]
